FAERS Safety Report 9106075 (Version 1)
Quarter: 2013Q1

REPORT INFORMATION
  Report Type: Spontaneous
  Country: US (occurrence: US)
  Receive Date: 20130220
  Receipt Date: 20130220
  Transmission Date: 20140127
  Serious: Yes (Death, Other)
  Sender: FDA-Public Use
  Company Number: US-PFIZER INC-2013060313

PATIENT
  Sex: Male

DRUGS (10)
  1. LIPITOR [Suspect]
     Dosage: UNK
  2. GABAPENTIN [Suspect]
     Dosage: UNK
  3. LOSARTAN [Suspect]
     Dosage: UNK
  4. METOPROLOL TARTRATE [Suspect]
     Dosage: UNK
  5. ACIPHEX [Suspect]
     Dosage: UNK
  6. ASA [Suspect]
     Dosage: UNK
  7. FISH OIL [Suspect]
     Dosage: UNK
  8. LEVEMIR [Suspect]
     Dosage: UNK
  9. NOVOLOG [Suspect]
     Dosage: UNK
  10. LASIX [Suspect]
     Dosage: UNK

REACTIONS (3)
  - Myocardial infarction [Fatal]
  - Chest pain [Unknown]
  - Chest discomfort [Unknown]
